FAERS Safety Report 4335998-3 (Version None)
Quarter: 2004Q1

REPORT INFORMATION
  Report Type: 
  Country: None (occurrence: None)
  Receive Date: 20040329
  Receipt Date: 20040204
  Transmission Date: 20041129
  Serious: No
  Sender: FDA-Public Use
  Company Number: USA040155665

PATIENT
  Age: 47 Year
  Sex: Male
  Weight: 118 kg

DRUGS (6)
  1. STRATTERA [Suspect]
     Indication: ATTENTION DEFICIT/HYPERACTIVITY DISORDER
     Dosage: 60 MG/DAY
     Dates: start: 20031222, end: 20040203
  2. TOPAMAX [Concomitant]
  3. LEXAPRO [Concomitant]
  4. TRAZADONE (TRAZODONE) [Concomitant]
  5. ADVAIR DISKUS 100/50 [Concomitant]
  6. CLOTRIMAZOLE [Concomitant]

REACTIONS (15)
  - CONSTIPATION [None]
  - DECREASED APPETITE [None]
  - DRY MOUTH [None]
  - DYSURIA [None]
  - EJACULATION FAILURE [None]
  - ERECTILE DYSFUNCTION [None]
  - EUPHORIC MOOD [None]
  - FEAR [None]
  - HOT FLUSH [None]
  - LIBIDO INCREASED [None]
  - MICTURITION URGENCY [None]
  - NEPHROLITHIASIS [None]
  - NERVOUSNESS [None]
  - ORGASMIC SENSATION DECREASED [None]
  - WEIGHT DECREASED [None]
